FAERS Safety Report 7726134-1 (Version None)
Quarter: 2011Q3

REPORT INFORMATION
  Report Type: 
  Country: None (occurrence: None)
  Receive Date: 20110902
  Receipt Date: 20110825
  Transmission Date: 20111222
  Serious: Yes (Hospitalization, Other)
  Sender: FDA-Public Use
  Company Number: PHHY2011CH76393

PATIENT
  Age: 67 Year
  Sex: Female

DRUGS (1)
  1. CEFEPIME [Suspect]
     Indication: ERYSIPELAS
     Dosage: UNK
     Route: 051
     Dates: start: 20110601, end: 20110621

REACTIONS (5)
  - TOXIC ENCEPHALOPATHY [None]
  - PSYCHOMOTOR HYPERACTIVITY [None]
  - CEREBROVASCULAR ACCIDENT [None]
  - CONFUSIONAL STATE [None]
  - ALTERED STATE OF CONSCIOUSNESS [None]
